FAERS Safety Report 14794527 (Version 1)
Quarter: 2018Q2

REPORT INFORMATION
  Report Type: Spontaneous
  Country: FR (occurrence: FR)
  Receive Date: 20180423
  Receipt Date: 20180423
  Transmission Date: 20180711
  Serious: Yes (Hospitalization)
  Sender: FDA-Public Use
  Company Number: FR-TEVA-2017-FR-838364

PATIENT
  Age: 88 Year
  Sex: Male
  Weight: 92 kg

DRUGS (7)
  1. RAMIPRIL. [Suspect]
     Active Substance: RAMIPRIL
     Indication: HYPERTENSION
     Route: 048
  2. LASILIX SPECIAL 500 MG, COMPRIM? S?CABLE [Suspect]
     Active Substance: FUROSEMIDE
     Indication: HYPERTENSIVE HEART DISEASE
     Route: 048
  3. AMLOR 10 MG, G?LULE [Concomitant]
     Active Substance: AMLODIPINE BESYLATE
     Route: 048
  4. IOMERON [Suspect]
     Active Substance: IOMEPROL
     Indication: COMPUTERISED TOMOGRAM ABDOMEN
     Route: 042
     Dates: start: 20171118
  5. BISOCE 2,5 MG, COMPRIM? PELLICUL? S?CABLE [Concomitant]
     Active Substance: BISOPROLOL FUMARATE
     Route: 048
  6. ALDACTONE 25 MG, COMPRIM? PELLICUL? S?CABLE [Concomitant]
     Route: 048
  7. DIFFU K, G?LULE [Concomitant]
     Active Substance: POTASSIUM CHLORIDE
     Route: 048

REACTIONS (1)
  - Acute kidney injury [Not Recovered/Not Resolved]

NARRATIVE: CASE EVENT DATE: 20171120
